FAERS Safety Report 8411901 (Version 3)
Quarter: 2013Q2

REPORT INFORMATION
  Report Type: Spontaneous
  Country: CA (occurrence: CA)
  Receive Date: 20120217
  Receipt Date: 20130625
  Transmission Date: 20140414
  Serious: Yes (Other)
  Sender: FDA-Public Use
  Company Number: CA-PURDUE-CAN-2012-0002629

PATIENT
  Age: 20 Year
  Sex: Male

DRUGS (5)
  1. HYDROMORPH CONTIN 18 MG [Suspect]
     Indication: PRODUCT USED FOR UNKNOWN INDICATION
     Dosage: 18 MG, UNK
     Route: 065
  2. HYDROMORPHONE HCL [Suspect]
     Indication: PRODUCT USED FOR UNKNOWN INDICATION
     Route: 065
  3. DIAZEPAM [Suspect]
  4. MARIJUANA [Suspect]
     Indication: PRODUCT USED FOR UNKNOWN INDICATION
     Dosage: UNK
     Route: 065
  5. METHADONE [Concomitant]
     Indication: PRODUCT USED FOR UNKNOWN INDICATION
     Dosage: UNK

REACTIONS (4)
  - Drug dependence [Unknown]
  - Substance abuse [Unknown]
  - Loss of consciousness [Unknown]
  - Impaired driving ability [Unknown]
